FAERS Safety Report 25871300 (Version 1)
Quarter: 2025Q4

REPORT INFORMATION
  Report Type: Spontaneous
  Country: US (occurrence: US)
  Receive Date: 20251001
  Receipt Date: 20251001
  Transmission Date: 20260117
  Serious: No
  Sender: PFIZER
  Company Number: US-PFIZER INC-202500193907

PATIENT
  Age: 73 Year
  Sex: Female

DRUGS (2)
  1. BRAFTOVI [Interacting]
     Active Substance: ENCORAFENIB
     Dosage: 450 MG, DAILY
  2. VENLAFAXINE [Interacting]
     Active Substance: VENLAFAXINE HYDROCHLORIDE
     Dosage: UNK

REACTIONS (2)
  - Drug interaction [Unknown]
  - Flatulence [Unknown]
